FAERS Safety Report 6901980-2 (Version None)
Quarter: 2010Q3

REPORT INFORMATION
  Report Type: 
  Country: None (occurrence: None)
  Receive Date: 20100803
  Receipt Date: 20080404
  Transmission Date: 20110219
  Serious: Yes (Other)
  Sender: FDA-Public Use
  Company Number: US-PFIZER INC-2008029802

PATIENT
  Sex: Male
  Weight: 55.3 kg

DRUGS (3)
  1. LYRICA [Suspect]
     Indication: HERPES ZOSTER
     Route: 048
     Dates: start: 20080215
  2. LYRICA [Suspect]
     Indication: NERVE INJURY
  3. CYMBALTA [Concomitant]

REACTIONS (7)
  - DISTURBANCE IN ATTENTION [None]
  - DIZZINESS [None]
  - DYSURIA [None]
  - HALLUCINATION [None]
  - NAUSEA [None]
  - SOMNOLENCE [None]
  - URINARY RETENTION [None]
